FAERS Safety Report 16402355 (Version 1)
Quarter: 2019Q2

REPORT INFORMATION
  Report Type: Spontaneous
  Country: US (occurrence: US)
  Receive Date: 20190607
  Receipt Date: 20190607
  Transmission Date: 20190711
  Serious: Yes (Hospitalization)
  Sender: FDA-Public Use
  Company Number: US-DRREDDYS-USA/USA/19/0110831

PATIENT
  Age: 73 Year
  Sex: Male

DRUGS (4)
  1. VANCOMYCIN [Suspect]
     Active Substance: VANCOMYCIN
     Indication: PNEUMONIA BACTERIAL
     Dosage: TROUGHS 14.6-26.0 MCG/ML AND 13.1-26.7 MCG/ML
     Route: 065
  2. DAPTOMYCIN FOR INJECTION [Suspect]
     Active Substance: DAPTOMYCIN
     Indication: PNEUMONIA BACTERIAL
     Route: 065
  3. DAPTOMYCIN FOR INJECTION [Suspect]
     Active Substance: DAPTOMYCIN
     Route: 042
  4. PIPERACILLINA/TAZOBACTAM [Suspect]
     Active Substance: PIPERACILLIN SODIUM\TAZOBACTAM SODIUM
     Indication: PNEUMONIA BACTERIAL
     Route: 065

REACTIONS (4)
  - White blood cell count increased [Unknown]
  - Drug resistance [Unknown]
  - Condition aggravated [Unknown]
  - Pyrexia [Unknown]
